FAERS Safety Report 5698380-2 (Version None)
Quarter: 2008Q2

REPORT INFORMATION
  Report Type: 
  Country: None (occurrence: None)
  Receive Date: 20080403
  Receipt Date: 20080326
  Transmission Date: 20081010
  Serious: Yes (Death, Hospitalization)
  Sender: FDA-Public Use
  Company Number: 2008SP005941

PATIENT
  Age: 58 Year
  Sex: Male

DRUGS (2)
  1. TEMODAL [Suspect]
     Indication: GLIOBLASTOMA
     Dosage: 360 MG; QD; PO
     Route: 048
     Dates: start: 20070901
  2. BETAPRED (CON.) [Concomitant]

REACTIONS (3)
  - AGRANULOCYTOSIS [None]
  - SEPSIS [None]
  - THROMBOCYTOPENIA [None]
